FAERS Safety Report 5715233-1 (Version None)
Quarter: 2008Q2

REPORT INFORMATION
  Report Type: 
  Country: None (occurrence: None)
  Receive Date: 20080423
  Receipt Date: 20071112
  Transmission Date: 20081010
  Serious: Yes (Other)
  Sender: FDA-Public Use
  Company Number: US-PFIZER INC-2007095298

PATIENT
  Sex: Female
  Weight: 68.181 kg

DRUGS (5)
  1. LIPITOR [Suspect]
     Indication: BLOOD CHOLESTEROL INCREASED
  2. TOPROL-XL [Concomitant]
  3. GLIPIZIDE [Concomitant]
  4. INDAPAMIDE [Concomitant]
  5. LANTUS [Concomitant]

REACTIONS (3)
  - ABASIA [None]
  - MUSCULAR WEAKNESS [None]
  - MYALGIA [None]
